FAERS Safety Report 22209068 (Version 1)
Quarter: 2023Q2

REPORT INFORMATION
  Report Type: Spontaneous
  Country: DE (occurrence: DE)
  Receive Date: 20230413
  Receipt Date: 20230413
  Transmission Date: 20230722
  Serious: Yes (Other)
  Sender: FDA-Public Use
  Company Number: DE-PFIZER INC-202200392481

PATIENT
  Age: 55 Year
  Sex: Female

DRUGS (2)
  1. MIRTAZAPINE [Suspect]
     Active Substance: MIRTAZAPINE
     Dosage: UNK
  2. TAVOR (LORAZEPAM) [Suspect]
     Active Substance: LORAZEPAM
     Dosage: 0.5 MG, 2X/DAY

REACTIONS (5)
  - Headache [Unknown]
  - Panic attack [Unknown]
  - Drug dependence [Unknown]
  - Confusional state [Unknown]
  - Feeling abnormal [Unknown]
